FAERS Safety Report 17969419 (Version 1)
Quarter: 2020Q3

REPORT INFORMATION
  Report Type: Spontaneous
  Country: PL (occurrence: PL)
  Receive Date: 20200701
  Receipt Date: 20200701
  Transmission Date: 20201103
  Serious: Yes (Other)
  Sender: FDA-Public Use
  Company Number: PL-PFIZER INC-2020249510

PATIENT
  Age: 29 Year
  Sex: Female

DRUGS (4)
  1. DOXIFLURIDINE [Suspect]
     Active Substance: DOXIFLURIDINE
     Indication: ACUTE MYELOID LEUKAEMIA
     Dosage: UNK
     Route: 065
  2. RYDAPT [Suspect]
     Active Substance: MIDOSTAURIN
     Indication: ACUTE MYELOID LEUKAEMIA
     Dosage: UNK
     Route: 065
     Dates: start: 20200401
  3. RYDAPT [Suspect]
     Active Substance: MIDOSTAURIN
     Dosage: UNK
     Route: 065
  4. ADRIAMYCIN [Suspect]
     Active Substance: DOXORUBICIN HYDROCHLORIDE
     Indication: ACUTE MYELOID LEUKAEMIA
     Dosage: UNK
     Route: 065

REACTIONS (3)
  - Atrioventricular block first degree [Recovered/Resolved]
  - Supraventricular tachycardia [Unknown]
  - Syncope [Unknown]
